FAERS Safety Report 17004159 (Version 1)
Quarter: 2019Q4

REPORT INFORMATION
  Report Type: Spontaneous
  Country: US (occurrence: US)
  Receive Date: 20191107
  Receipt Date: 20191107
  Transmission Date: 20200122
  Serious: No
  Sender: FDA-Public Use
  Company Number: US-VERTEX PHARMACEUTICALS-2018-001664

PATIENT
  Sex: Male

DRUGS (1)
  1. ORKAMBI [Suspect]
     Active Substance: IVACAFTOR\LUMACAFTOR
     Indication: CYSTIC FIBROSIS
     Dosage: 2 DOSAGE FORM, BID
     Route: 048
     Dates: start: 20161021, end: 20180227

REACTIONS (7)
  - Cough [Not Recovered/Not Resolved]
  - Nasopharyngitis [Unknown]
  - Dyspepsia [Unknown]
  - Gastrointestinal disorder [Recovered/Resolved]
  - Pulmonary function test decreased [Unknown]
  - Chest discomfort [Recovered/Resolved]
  - Respiratory tract congestion [Unknown]

NARRATIVE: CASE EVENT DATE: 2018
